FAERS Safety Report 6993317-8 (Version None)
Quarter: 2010Q3

REPORT INFORMATION
  Report Type: 
  Country: None (occurrence: None)
  Receive Date: 20100917
  Receipt Date: 20100323
  Transmission Date: 20110219
  Serious: No
  Sender: FDA-Public Use
  Company Number: US-ASTRAZENECA-2010SE13100

PATIENT

DRUGS (1)
  1. SEROQUEL XR [Suspect]
     Route: 048

REACTIONS (3)
  - ADVERSE DRUG REACTION [None]
  - DRUG DOSE OMISSION [None]
  - UPPER-AIRWAY COUGH SYNDROME [None]
